FAERS Safety Report 8035801 (Version 2)
Quarter: 2012Q4

REPORT INFORMATION
  Report Type: 
  Country: US (occurrence: US)
  Receive Date: 20110714
  Receipt Date: 20121227
  Transmission Date: 20130627
  Serious: Yes (Hospitalization)
  Sender: FDA-Public Use
  Company Number: US-ASTRAZENECA-2011SE33529

PATIENT
  Age: 79 Year
  Sex: Male
  Weight: 81 kg

DRUGS (17)
  1. VANDETANIB [Suspect]
     Indication: THYROID CANCER
     Route: 048
     Dates: start: 20110520
  2. VANDETANIB [Suspect]
     Indication: THYROID CANCER
     Route: 048
     Dates: start: 20110511
  3. LANSOPRAZOLE [Concomitant]
     Dosage: 15 MG DAILY, PRN
     Route: 050
  4. ASPIRIN [Concomitant]
     Route: 050
  5. RAPAFLO [Concomitant]
     Route: 050
  6. DUONEB [Concomitant]
     Dosage: 0.5-2.5 (3) MG PRN
     Route: 055
  7. PROCHLORPERAZINE MALEATE [Concomitant]
     Route: 050
  8. SYNTHROID [Concomitant]
  9. LEXAPRO [Concomitant]
  10. CALCITROL [Concomitant]
  11. CALCIUM CARBONATE [Concomitant]
  12. LASIX [Concomitant]
  13. HYDROCODONE [Concomitant]
  14. ALPRAZOLAM [Concomitant]
  15. COMPAZINE [Concomitant]
  16. IRON [Concomitant]
  17. PREDNISONE [Concomitant]

REACTIONS (9)
  - Blood sodium decreased [Recovering/Resolving]
  - Nausea [Recovering/Resolving]
  - Vomiting [Recovering/Resolving]
  - Diarrhoea [Recovering/Resolving]
  - Hot flush [Unknown]
  - Cough [Unknown]
  - Dyspnoea [Unknown]
  - Blood pressure increased [Unknown]
  - Rash [Unknown]
